FAERS Safety Report 26124444 (Version 1)
Quarter: 2025Q4

REPORT INFORMATION
  Report Type: Spontaneous
  Country: GB (occurrence: GB)
  Receive Date: 20251205
  Receipt Date: 20251205
  Transmission Date: 20260117
  Serious: Yes (Disabling, Other)
  Sender: DAIICHI
  Company Number: None

PATIENT
  Age: 64 Year
  Sex: Female
  Weight: 57 kg

DRUGS (2)
  1. EDOXABAN [Suspect]
     Active Substance: EDOXABAN
     Indication: Deep vein thrombosis
     Dosage: 30 MG, QD
     Route: 065
     Dates: start: 202508, end: 20251119
  2. LORAZEPAM [Concomitant]
     Active Substance: LORAZEPAM
     Indication: Product used for unknown indication
     Dosage: UNK
     Route: 065

REACTIONS (5)
  - Aggression [Recovered/Resolved]
  - Aggression [Recovered/Resolved]
  - Intentional self-injury [Recovered/Resolved]
  - Insomnia [Recovering/Resolving]
  - Decreased appetite [Recovering/Resolving]

NARRATIVE: CASE EVENT DATE: 20240818
